FAERS Safety Report 13626255 (Version 1)
Quarter: 2017Q2

REPORT INFORMATION
  Report Type: Spontaneous
  Country: US (occurrence: US)
  Receive Date: 20170531
  Receipt Date: 20170531
  Transmission Date: 20170830
  Serious: Yes (Hospitalization)
  Sender: FDA-Public Use
  Company Number: US-ASTELLAS-1314538

PATIENT
  Sex: Male
  Weight: 76.27 kg

DRUGS (2)
  1. MELOXICAM. [Concomitant]
     Active Substance: MELOXICAM
  2. TARCEVA [Suspect]
     Active Substance: ERLOTINIB HYDROCHLORIDE
     Indication: LUNG NEOPLASM MALIGNANT
     Dosage: FREQUENCY: DAILY
     Route: 048
     Dates: start: 20131112

REACTIONS (21)
  - Nervous system disorder [Not Recovered/Not Resolved]
  - Acne [Unknown]
  - Muscle spasms [Unknown]
  - Lacrimation increased [Unknown]
  - Contusion [Unknown]
  - Nausea [Unknown]
  - Rash [Unknown]
  - Balance disorder [Not Recovered/Not Resolved]
  - Vertigo [Unknown]
  - Madarosis [Unknown]
  - Paraesthesia [Unknown]
  - Pneumonia [Unknown]
  - Confusional state [Unknown]
  - Pruritus [Unknown]
  - Kidney infection [Unknown]
  - Dermatitis acneiform [Not Recovered/Not Resolved]
  - Pain [Unknown]
  - Dermatitis acneiform [Unknown]
  - Headache [Not Recovered/Not Resolved]
  - Skin burning sensation [Unknown]
  - Diarrhoea [Unknown]
